FAERS Safety Report 7835667-9 (Version None)
Quarter: 2011Q4

REPORT INFORMATION
  Report Type: 
  Country: None (occurrence: None)
  Receive Date: 20111024
  Receipt Date: 20111020
  Transmission Date: 20120403
  Serious: Yes (Life-Threatening)
  Sender: FDA-Public Use
  Company Number: CN-ASTRAZENECA-2011SE63014

PATIENT
  Age: 48 Year
  Sex: Female

DRUGS (2)
  1. LIDOCAINE [Suspect]
     Indication: PERIARTHRITIS
  2. DELSOLONE [Concomitant]

REACTIONS (1)
  - ANAPHYLACTIC SHOCK [None]
